FAERS Safety Report 5317087-4 (Version None)
Quarter: 2007Q2

REPORT INFORMATION
  Report Type: 
  Country: None (occurrence: None)
  Receive Date: 20070504
  Receipt Date: 20070426
  Transmission Date: 20071010
  Serious: Yes (Hospitalization)
  Sender: FDA-Public Use
  Company Number: IL-ROCHE-495165

PATIENT
  Age: 28 Year
  Sex: Female
  Weight: 49 kg

DRUGS (2)
  1. PEG-INTERFERON ALFA 2A (RO 25-8310) [Suspect]
     Dosage: FORM: INJECTION.
     Route: 058
     Dates: start: 20070108, end: 20070322
  2. RIBAVIRIN [Suspect]
     Route: 048
     Dates: start: 20070108, end: 20070321

REACTIONS (1)
  - SUBARACHNOID HAEMORRHAGE [None]
